FAERS Safety Report 4928682-6 (Version None)
Quarter: 2006Q1

REPORT INFORMATION
  Report Type: 
  Country: None (occurrence: None)
  Receive Date: 20060301
  Receipt Date: 20060223
  Transmission Date: 20060701
  Serious: Yes (Hospitalization, Other)
  Sender: FDA-Public Use
  Company Number: US-JNJFOC-20051205948

PATIENT
  Sex: Female
  Weight: 57.15 kg

DRUGS (3)
  1. REMICADE [Suspect]
     Dosage: 3 VIALS
     Route: 042
  2. REMICADE [Suspect]
     Indication: RHEUMATOID ARTHRITIS
     Route: 042
  3. NSAID'S [Concomitant]

REACTIONS (6)
  - ARTHRALGIA [None]
  - INFECTION IN AN IMMUNOCOMPROMISED HOST [None]
  - JOINT ARTHROPLASTY [None]
  - MALAISE [None]
  - PYREXIA [None]
  - VOMITING [None]
